FAERS Safety Report 8457436-1 (Version None)
Quarter: 2012Q2

REPORT INFORMATION
  Report Type: 
  Country: None (occurrence: None)
  Receive Date: 20120621
  Receipt Date: 20120618
  Transmission Date: 20120825
  Serious: Yes (Hospitalization)
  Sender: FDA-Public Use
  Company Number: FR-MERCK-1206FRA00094

PATIENT
  Age: 55 Year
  Sex: Female

DRUGS (8)
  1. PEGINTERFERON ALFA-2A [Concomitant]
     Route: 065
     Dates: start: 20111214, end: 20120404
  2. BOCEPREVIR [Suspect]
     Indication: HEPATITIS CHRONIC ACTIVE
     Route: 048
     Dates: start: 20120130, end: 20120404
  3. METRONIDAZOLE [Concomitant]
     Indication: PYELONEPHRITIS
     Route: 065
     Dates: start: 20120324
  4. GENTAMICIN [Concomitant]
     Indication: PYELONEPHRITIS
     Route: 065
     Dates: start: 20120324
  5. RIBAVIRIN [Concomitant]
     Route: 065
     Dates: start: 20111214, end: 20120404
  6. EMTRICITABINE AND TENOFOVIR DISOPROXIL FUMARATE [Concomitant]
     Route: 065
     Dates: start: 20110622
  7. CEFTRIAXONE SODIUM [Concomitant]
     Indication: PYELONEPHRITIS
     Route: 065
     Dates: start: 20120324
  8. ISENTRESS [Suspect]
     Indication: HIV INFECTION
     Route: 048
     Dates: start: 20110622

REACTIONS (1)
  - DRUG RASH WITH EOSINOPHILIA AND SYSTEMIC SYMPTOMS [None]
